FAERS Safety Report 25093231 (Version 1)
Quarter: 2025Q1

REPORT INFORMATION
  Report Type: Spontaneous
  Country: MX (occurrence: MX)
  Receive Date: 20250319
  Receipt Date: 20250319
  Transmission Date: 20250409
  Serious: Yes (Death, Other)
  Sender: ASTELLAS
  Company Number: MX-ASTELLAS-2025-AER-015717

PATIENT
  Age: 64 Year
  Sex: Male

DRUGS (2)
  1. CRESEMBA [Suspect]
     Active Substance: ISAVUCONAZONIUM SULFATE
     Indication: Mucormycosis
     Route: 048
  2. ISAVUCONAZOLE [Suspect]
     Active Substance: ISAVUCONAZOLE
     Indication: Mucormycosis
     Route: 065

REACTIONS (1)
  - Mucormycosis [Fatal]
